FAERS Safety Report 10042699 (Version 2)
Quarter: 2014Q3

REPORT INFORMATION
  Report Type: Report from Study
  Country: DE (occurrence: DE)
  Receive Date: 20140327
  Receipt Date: 20140922
  Transmission Date: 20150326
  Serious: Yes (Hospitalization)
  Sender: FDA-Public Use
  Company Number: PHHO2014DE004073

PATIENT

DRUGS (10)
  1. PANTOZOL [Suspect]
     Active Substance: PANTOPRAZOLE SODIUM
  2. ACETYLSALICYLIC ACID [Suspect]
     Active Substance: ASPIRIN
     Indication: HYPERTENSION
     Dosage: 100 MG, UNK
     Dates: start: 20121123
  3. AMLODIPINE [Suspect]
     Active Substance: AMLODIPINE BESYLATE
     Indication: HYPERTENSION
     Dosage: 5 MG, UNK
     Dates: start: 20121123
  4. BELOC-ZOC MITE [Suspect]
     Active Substance: METOPROLOL SUCCINATE
     Indication: HYPERTENSION
     Dosage: 47.5 MG, UNK
     Dates: start: 20140128, end: 20140220
  5. MOVICOL [Suspect]
     Active Substance: POLYETHYLENE GLYCOL 3350\POTASSIUM CHLORIDE\SODIUM BICARBONATE\SODIUM CHLORIDE
  6. DICLAC [Concomitant]
     Active Substance: DICLOFENAC POTASSIUM
     Indication: BACK PAIN
     Dosage: 75 MG, UNK
     Dates: start: 200911
  7. RANIBIZUMAB [Suspect]
     Active Substance: RANIBIZUMAB
     Dosage: UNK
     Route: 031
     Dates: start: 20130909, end: 20130909
  8. TRAMAL [Suspect]
     Active Substance: TRAMADOL
  9. TRAMADOL [Concomitant]
     Active Substance: TRAMADOL
     Indication: BACK PAIN
     Dosage: 100 MG, UNK
     Dates: start: 200911
  10. RANIBIZUMAB [Suspect]
     Active Substance: RANIBIZUMAB
     Indication: RETINAL VEIN OCCLUSION
     Dosage: UNK
     Route: 031
     Dates: start: 20121126, end: 20121126

REACTIONS (2)
  - Polymyalgia rheumatica [Not Recovered/Not Resolved]
  - Upper limb fracture [Recovered/Resolved with Sequelae]

NARRATIVE: CASE EVENT DATE: 20140128
